FAERS Safety Report 12775929 (Version 1)
Quarter: 2016Q3

REPORT INFORMATION
  Report Type: Spontaneous
  Country: US (occurrence: US)
  Receive Date: 20160923
  Receipt Date: 20160923
  Transmission Date: 20161109
  Serious: Yes (Death, Hospitalization, Other)
  Sender: FDA-Public Use
  Company Number: PHHY2016US127227

PATIENT
  Age: 51 Year
  Sex: Female

DRUGS (4)
  1. METHOTREXATE. [Suspect]
     Active Substance: METHOTREXATE
     Indication: HISTIOCYTIC SARCOMA
     Dosage: 3.5 G/M2, UNK, EVERY 14 DAYS
     Route: 065
  2. PROCARBAZINE [Suspect]
     Active Substance: PROCARBAZINE
     Indication: HISTIOCYTIC SARCOMA
     Dosage: 100 MG/M2, UNK MONTHLY ON DAYS 2-8
     Route: 065
  3. VINCRISTINE [Suspect]
     Active Substance: VINCRISTINE
     Indication: HISTIOCYTIC SARCOMA
     Dosage: 1.4 MG/M2, BIW
     Route: 065
  4. DEXAMETHASONE. [Suspect]
     Active Substance: DEXAMETHASONE
     Indication: HISTIOCYTIC SARCOMA
     Route: 065

REACTIONS (6)
  - Neuropathy peripheral [Unknown]
  - Disease progression [Fatal]
  - Thrombocytopenia [Unknown]
  - Histiocytic sarcoma [Fatal]
  - Ascites [Unknown]
  - Drug effect incomplete [Unknown]
